FAERS Safety Report 6012210-0 (Version None)
Quarter: 2008Q4

REPORT INFORMATION
  Report Type: 
  Country: None (occurrence: None)
  Receive Date: 20081216
  Receipt Date: 20071220
  Transmission Date: 20090506
  Serious: Yes (Other)
  Sender: FDA-Public Use
  Company Number: US-WYE-H01860207

PATIENT
  Age: 40 Year
  Sex: Female

DRUGS (6)
  1. EFFEXOR XR [Suspect]
     Indication: DEPRESSION
     Dosage: DOSE AND FREQUENCY UNSPECIFIED, ORAL ; 300 MG 1X PER 1 DAY
     Route: 048
     Dates: end: 20070901
  2. EFFEXOR XR [Suspect]
     Indication: DEPRESSION
     Dosage: DOSE AND FREQUENCY UNSPECIFIED, ORAL ; 300 MG 1X PER 1 DAY
     Route: 048
     Dates: start: 20070901
  3. TRAZODONE HCL [Suspect]
     Indication: DEPRESSION
  4. ZOLOFT [Suspect]
     Indication: DEPRESSION
     Dosage: 200 MG FREQUENCY UNSPECIFIED, ORAL
     Route: 048
  5. SEROQUEL [Concomitant]
  6. OXYCONTIN [Concomitant]

REACTIONS (3)
  - DIZZINESS [None]
  - LOSS OF CONSCIOUSNESS [None]
  - SEROTONIN SYNDROME [None]
